FAERS Safety Report 9711831 (Version 1)
Quarter: 2013Q4

REPORT INFORMATION
  Report Type: Spontaneous
  Country: DE (occurrence: DE)
  Receive Date: 20131126
  Receipt Date: 20131126
  Transmission Date: 20140711
  Serious: Yes (Other)
  Sender: FDA-Public Use
  Company Number: DE-B.I. PHARMACEUTICALS,INC./RIDGEFIELD-2013-BI-38455GD

PATIENT
  Age: 51 Year
  Sex: Female

DRUGS (7)
  1. CLONIDINE [Suspect]
     Indication: HYPERTENSION
     Route: 048
  2. AMLODIPINE [Suspect]
     Indication: HYPERTENSION
     Route: 048
  3. BISOPROLOL [Suspect]
     Indication: HYPERTENSION
     Route: 048
  4. CANDESARTAN [Suspect]
     Indication: HYPERTENSION
     Route: 048
  5. MINOXIDIL [Suspect]
     Indication: HYPERTENSION
     Route: 048
  6. URAPIDIL [Suspect]
     Indication: HYPERTENSION
     Route: 048
  7. TORASEMIDE [Suspect]
     Indication: HYPERTENSION
     Route: 048

REACTIONS (2)
  - Hypertension [Unknown]
  - Drug ineffective [Unknown]
